FAERS Safety Report 16068441 (Version 9)
Quarter: 2020Q1

REPORT INFORMATION
  Report Type: Report from Study
  Country: US (occurrence: US)
  Receive Date: 20190313
  Receipt Date: 20200305
  Transmission Date: 20200409
  Serious: Yes (Hospitalization)
  Sender: FDA-Public Use
  Company Number: US-ACTELION-A-NJ2018-172387

PATIENT
  Age: 71 Year
  Sex: Female
  Weight: 78.91 kg

DRUGS (10)
  1. OPSUMIT [Suspect]
     Active Substance: MACITENTAN
     Indication: PULMONARY ARTERIAL HYPERTENSION
     Dosage: 10 MG, QD
     Route: 048
     Dates: start: 201804
  2. OPSUMIT [Suspect]
     Active Substance: MACITENTAN
     Dosage: 10 MG, QD
     Route: 048
  3. REMODULIN [Suspect]
     Active Substance: TREPROSTINIL
     Dosage: 52 NG/KG, PER MIN
     Route: 042
  4. EXTRA STRENGTH TYLENOL PM [Concomitant]
     Active Substance: ACETAMINOPHEN\DIPHENHYDRAMINE HYDROCHLORIDE
  5. REMODULIN [Suspect]
     Active Substance: TREPROSTINIL
     Dosage: .048 MCG/KG
     Route: 042
     Dates: start: 201708
  6. REMODULIN [Suspect]
     Active Substance: TREPROSTINIL
     Indication: PULMONARY ARTERIAL HYPERTENSION
     Dosage: .048 MCG/KG
     Route: 042
     Dates: start: 20170825
  7. REMODULIN [Suspect]
     Active Substance: TREPROSTINIL
     Dosage: .048 MCG/KG
     Route: 042
     Dates: start: 201708
  8. ADCIRCA [Concomitant]
     Active Substance: TADALAFIL
  9. OXYGEN. [Concomitant]
     Active Substance: OXYGEN
  10. GABAPENTIN. [Concomitant]
     Active Substance: GABAPENTIN

REACTIONS (41)
  - Product dose omission [Unknown]
  - Diarrhoea [Unknown]
  - Condition aggravated [Unknown]
  - Adverse event [Unknown]
  - Arthralgia [Unknown]
  - Walking aid user [Unknown]
  - Unevaluable event [Unknown]
  - Catheter site rash [Not Recovered/Not Resolved]
  - Rash [Not Recovered/Not Resolved]
  - Urticaria [Not Recovered/Not Resolved]
  - Anaemia [Unknown]
  - Fluid retention [Unknown]
  - Nausea [Recovered/Resolved]
  - Joint swelling [Unknown]
  - Rash pruritic [Unknown]
  - Headache [Recovered/Resolved]
  - Loss of consciousness [Recovered/Resolved]
  - Medical procedure [Unknown]
  - Myalgia [Unknown]
  - Pneumonia [Not Recovered/Not Resolved]
  - Oedema peripheral [Unknown]
  - Paraesthesia [Unknown]
  - Peroneal nerve palsy [Unknown]
  - Fall [Unknown]
  - Back pain [Unknown]
  - Hypotension [Unknown]
  - Pain [Unknown]
  - Gait disturbance [Unknown]
  - Catheter site pruritus [Unknown]
  - Nasal congestion [Unknown]
  - Gastric disorder [Not Recovered/Not Resolved]
  - Lower respiratory tract infection [Not Recovered/Not Resolved]
  - Neuropathy peripheral [Unknown]
  - Urinary tract infection [Unknown]
  - Asthenia [Unknown]
  - Pruritus [Unknown]
  - Nasopharyngitis [Unknown]
  - Mobility decreased [Unknown]
  - Feeling cold [Unknown]
  - Irritable bowel syndrome [Unknown]
  - Weight decreased [Unknown]

NARRATIVE: CASE EVENT DATE: 201804
